FAERS Safety Report 4286640-1 (Version None)
Quarter: 2004Q1

REPORT INFORMATION
  Report Type: 
  Country: None (occurrence: None)
  Receive Date: 20040206
  Receipt Date: 20040123
  Transmission Date: 20041129
  Serious: Yes (Hospitalization)
  Sender: FDA-Public Use
  Company Number: WAES 0402USA00501

PATIENT
  Age: 87 Year
  Sex: Female

DRUGS (4)
  1. [THERAPY UNSPECIFIED] [Concomitant]
  2. FOSAMAX [Suspect]
     Indication: OSTEOPOROSIS
     Route: 048
  3. AMLODIPINE BESYLATE [Concomitant]
  4. GUANABENZ ACETATE [Concomitant]

REACTIONS (1)
  - RENAL FAILURE ACUTE [None]
